FAERS Safety Report 8461091 (Version 6)
Quarter: 2014Q1

REPORT INFORMATION
  Report Type: Spontaneous
  Country: US (occurrence: None)
  Receive Date: 20120308
  Receipt Date: 20140311
  Transmission Date: 20141002
  Serious: Yes (Life-Threatening, Hospitalization, Other)
  Sender: FDA-Public Use
  Company Number: ADR-2011-11403

PATIENT
  Age: 36 Year
  Sex: Female

DRUGS (3)
  1. BACLOFEN [Suspect]
     Indication: LUMBAR RADICULOPATHY
     Dosage: 50 MCG, DAILY, INTRA
  2. BACLOFEN [Suspect]
     Indication: PAIN
     Dosage: 50 MCG, DAILY, INTRA
  3. MORPHINE [Concomitant]

REACTIONS (22)
  - Pain [None]
  - Withdrawal syndrome [None]
  - Tremor [None]
  - Nausea [None]
  - Somnolence [None]
  - Irritability [None]
  - Suicidal ideation [None]
  - Weight decreased [None]
  - Overdose [None]
  - Device malfunction [None]
  - Vomiting [None]
  - Muscle spasticity [None]
  - Device dislocation [None]
  - Pain [None]
  - Device inversion [None]
  - Implant site scar [None]
  - Underdose [None]
  - Device alarm issue [None]
  - Incorrect dose administered by device [None]
  - Device failure [None]
  - Unresponsive to stimuli [None]
  - Respiratory arrest [None]
